FAERS Safety Report 9420661 (Version 1)
Quarter: 2013Q3

REPORT INFORMATION
  Report Type: Report from Study
  Country: US (occurrence: US)
  Receive Date: 20130725
  Receipt Date: 20130725
  Transmission Date: 20140515
  Serious: No
  Sender: FDA-Public Use
  Company Number: PHEH2013US015694

PATIENT
  Age: 36 Year
  Sex: Female

DRUGS (3)
  1. TASIGNA [Suspect]
     Indication: CHRONIC MYELOID LEUKAEMIA
     Route: 048
     Dates: start: 201101
  2. VITAMIN B12 [Concomitant]
     Indication: VITAMIN B12 DEFICIENCY
  3. EFEXOR XR [Concomitant]

REACTIONS (2)
  - Memory impairment [Recovered/Resolved]
  - Fatigue [Recovered/Resolved]
